FAERS Safety Report 4525528-5 (Version None)
Quarter: 2004Q4

REPORT INFORMATION
  Report Type: 
  Country: None (occurrence: None)
  Receive Date: 20041116
  Receipt Date: 20040927
  Transmission Date: 20050328
  Serious: No
  Sender: FDA-Public Use
  Company Number: S04-USA-06416-01

PATIENT
  Age: 83 Year
  Sex: Female

DRUGS (4)
  1. NAMENDA [Suspect]
     Indication: DEMENTIA ALZHEIMER'S TYPE
     Dosage: 5 MG QD PO
     Route: 048
     Dates: start: 20040923
  2. ARICEPT [Concomitant]
  3. TOPROL-XL [Concomitant]
  4. REQUIP (ROPINIROLE HYDOCHLORIDE) [Concomitant]

REACTIONS (3)
  - ASTHENIA [None]
  - HYPERSOMNIA [None]
  - TREMOR [None]
